FAERS Safety Report 6370831-X (Version None)
Quarter: 2009Q3

REPORT INFORMATION
  Report Type: 
  Country: None (occurrence: None)
  Receive Date: 20090923
  Receipt Date: 20070607
  Transmission Date: 20100115
  Serious: Yes (Other)
  Sender: FDA-Public Use
  Company Number: US-ASTRAZENECA-2006UW24176

PATIENT
  Age: 17918 Day
  Sex: Male
  Weight: 101.6 kg

DRUGS (42)
  1. SEROQUEL [Suspect]
     Indication: INSOMNIA
     Route: 048
     Dates: start: 20030101, end: 20050101
  2. SEROQUEL [Suspect]
     Dosage: 100 - 200 MG AT NIGHT
     Route: 048
     Dates: start: 20041126
  3. RISPERDAL [Concomitant]
     Indication: ANXIETY
     Dates: start: 20030801
  4. RISPERDAL [Concomitant]
     Indication: OBSESSIVE-COMPULSIVE DISORDER
     Dates: start: 20030801
  5. RISPERDAL [Concomitant]
     Dates: start: 20030411
  6. RISPERDAL [Concomitant]
     Dates: start: 20030411
  7. ZYPREXA [Concomitant]
     Dates: start: 20040201, end: 20040801
  8. ZYPREXA [Concomitant]
     Dosage: STRENGTH - 5 - 10 MG
     Dates: start: 20030902
  9. XANAX [Concomitant]
     Indication: NERVOUSNESS
     Dates: end: 20030901
  10. XANAX [Concomitant]
     Indication: ANXIETY
     Dates: end: 20030901
  11. XANAX [Concomitant]
     Indication: DEPRESSION
     Dates: end: 20030901
  12. XANAX [Concomitant]
     Indication: PANIC ATTACK
     Dates: end: 20030901
  13. XANAX [Concomitant]
     Indication: OBSESSIVE-COMPULSIVE DISORDER
     Dates: end: 20030901
  14. XANAX [Concomitant]
     Dosage: TAKE ONE EVERY 8 HOURS AS NEEDED
     Dates: start: 19930101, end: 20030226
  15. XANAX [Concomitant]
     Dosage: TAKE ONE EVERY 8 HOURS AS NEEDED
     Dates: start: 19930101, end: 20030226
  16. XANAX [Concomitant]
     Dosage: TAKE ONE EVERY 8 HOURS AS NEEDED
     Dates: start: 19930101, end: 20030226
  17. XANAX [Concomitant]
     Dosage: TAKE ONE EVERY 8 HOURS AS NEEDED
     Dates: start: 19930101, end: 20030226
  18. XANAX [Concomitant]
     Dosage: TAKE ONE EVERY 8 HOURS AS NEEDED
     Dates: start: 19930101, end: 20030226
  19. ALBUTEROL [Concomitant]
     Dosage: 2 PUFFS AS REQUIRED
     Dates: start: 19990101
  20. AMBIEN [Concomitant]
     Indication: SLEEP DISORDER
     Dosage: 20 - 50  MG AT NIGHT
     Dates: start: 19930101
  21. AMBIEN [Concomitant]
     Indication: ANXIETY
     Dosage: 20 - 50  MG AT NIGHT
     Dates: start: 19930101
  22. AMBIEN [Concomitant]
     Indication: DEPRESSION
     Dosage: 20 - 50  MG AT NIGHT
     Dates: start: 19930101
  23. AMBIEN [Concomitant]
     Indication: PANIC ATTACK
     Dosage: 20 - 50  MG AT NIGHT
     Dates: start: 19930101
  24. AMBIEN [Concomitant]
     Indication: OBSESSIVE-COMPULSIVE DISORDER
     Dosage: 20 - 50  MG AT NIGHT
     Dates: start: 19930101
  25. ATENOLOL [Concomitant]
     Dates: start: 20030128
  26. AZMACORT [Concomitant]
     Dosage: 2 - 3 PUFFS EVERY 12 HOURS
     Dates: start: 19990101
  27. CELEXA [Concomitant]
     Indication: OBSESSIVE-COMPULSIVE DISORDER
     Dosage: 20 - 60 MG DAILY
     Dates: start: 20030226
  28. CLONIDINE [Concomitant]
     Dosage: STRENGTH - 0.1 - 0.2 MG, DOSE - 0.1 MG THREE TIMES A DAY
     Dates: start: 20030227
  29. DEPAKOTE [Concomitant]
     Indication: ANXIETY
     Dosage: STRENGTH - 250 - 500 MG, DOSE - 500 MG TWO TIMES A DAY
     Route: 048
     Dates: start: 20010322
  30. DEPAKOTE [Concomitant]
     Indication: DEPRESSION
     Dosage: STRENGTH - 250 - 500 MG, DOSE - 500 MG TWO TIMES A DAY
     Route: 048
     Dates: start: 20010322
  31. DEPAKOTE [Concomitant]
     Indication: PANIC ATTACK
     Dosage: STRENGTH - 250 - 500 MG, DOSE - 500 MG TWO TIMES A DAY
     Route: 048
     Dates: start: 20010322
  32. DEPAKOTE [Concomitant]
     Indication: OBSESSIVE-COMPULSIVE DISORDER
     Dosage: STRENGTH - 250 - 500 MG, DOSE - 500 MG TWO TIMES A DAY
     Route: 048
     Dates: start: 20010322
  33. REMERON [Concomitant]
     Dosage: STRENGTH - 10 - 15 MG AT NIGHT
     Dates: start: 20030922
  34. ALTACE [Concomitant]
     Dates: start: 20031013
  35. ZOLOFT [Concomitant]
     Dosage: STRENGTH - 50 - 100 MG
     Dates: start: 20031027
  36. FLUOXETINE [Concomitant]
     Dates: start: 20040205
  37. GABAPENTIN [Concomitant]
     Dates: start: 20050223
  38. LUNESTA [Concomitant]
     Dosage: STRENGTH - 2 - 3 MG
     Dates: start: 20050422
  39. ZANTAC [Concomitant]
     Dates: start: 20030204
  40. KLONOPIN [Concomitant]
     Dosage: STRENGTH - 1 - 2 MG, DOSE - 2 - 4 MG DAILY
     Dates: start: 20030226
  41. ACIPHEX [Concomitant]
     Dates: start: 20040624
  42. OXAZEPAM [Concomitant]
     Dates: start: 20030227

REACTIONS (4)
  - DIABETES MELLITUS [None]
  - DIABETES MELLITUS INADEQUATE CONTROL [None]
  - DRUG INEFFECTIVE [None]
  - TYPE 2 DIABETES MELLITUS [None]
